FAERS Safety Report 4962465-6 (Version None)
Quarter: 2006Q1

REPORT INFORMATION
  Report Type: 
  Country: None (occurrence: None)
  Receive Date: 20060329
  Receipt Date: 20060124
  Transmission Date: 20060701
  Serious: Yes (Hospitalization)
  Sender: FDA-Public Use
  Company Number: S06-USA-01186-01

PATIENT
  Age: 85 Year
  Sex: Female

DRUGS (1)
  1. TIAZAC [Suspect]

REACTIONS (5)
  - ATRIAL FIBRILLATION [None]
  - CARDIAC ARREST [None]
  - CARDIAC PACEMAKER MALFUNCTION [None]
  - GLOSSODYNIA [None]
  - POST PROCEDURAL OEDEMA [None]
